FAERS Safety Report 8336065-4 (Version None)
Quarter: 2012Q1

REPORT INFORMATION
  Report Type: 
  Country: None (occurrence: None)
  Receive Date: 20120329
  Receipt Date: 20090806
  Transmission Date: 20120608
  Serious: Yes (Other)
  Sender: FDA-Public Use
  Company Number: PHEH2008US10023

PATIENT
  Sex: Male

DRUGS (3)
  1. LEXAPRO [Concomitant]
  2. NAMENDA [Concomitant]
  3. EXELON [Suspect]
     Indication: DEMENTIA
     Dosage: 9.5 MG
     Dates: start: 20080501

REACTIONS (7)
  - HALLUCINATION [None]
  - DEMENTIA [None]
  - HEART RATE INCREASED [None]
  - DYSARTHRIA [None]
  - CONFUSIONAL STATE [None]
  - COORDINATION ABNORMAL [None]
  - MEMORY IMPAIRMENT [None]
